FAERS Safety Report 8958592 (Version 1)
Quarter: 2012Q4

REPORT INFORMATION
  Report Type: Spontaneous
  Country: US (occurrence: None)
  Receive Date: 20121205
  Receipt Date: 20121205
  Transmission Date: 20130627
  Serious: Yes (Disabling)
  Sender: FDA-Public Use
  Company Number: None

PATIENT
  Sex: Female
  Weight: 56.7 kg

DRUGS (3)
  1. ADVAIR [Suspect]
     Indication: ASTHMA CHRONIC
  2. ADVAIR [Suspect]
     Indication: LUNG DISORDER
  3. ADVAIR [Suspect]

REACTIONS (3)
  - Cataract [None]
  - Visual acuity reduced [None]
  - Drug hypersensitivity [None]
